FAERS Safety Report 23225857 (Version 2)
Quarter: 2024Q1

REPORT INFORMATION
  Report Type: Spontaneous
  Country: US (occurrence: US)
  Receive Date: 20231124
  Receipt Date: 20240206
  Transmission Date: 20240410
  Serious: No
  Sender: FDA-Public Use
  Company Number: US-SA-SAC20231122001209

PATIENT
  Age: 76 Year
  Sex: Female
  Weight: 83 kg

DRUGS (16)
  1. DUPIXENT [Suspect]
     Active Substance: DUPILUMAB
     Indication: Asthma
     Dosage: 300 MG, QOW
     Route: 058
     Dates: start: 20230718
  2. LEVALBUTEROL [Concomitant]
     Active Substance: LEVALBUTEROL
  3. ADVAIR HFA [Concomitant]
     Active Substance: FLUTICASONE PROPIONATE\SALMETEROL XINAFOATE
  4. LOSARTAN POTASSIUM [Concomitant]
     Active Substance: LOSARTAN POTASSIUM
  5. VITAMIN C [Concomitant]
     Active Substance: ASCORBIC ACID
  6. METOPROLOL SUCCINATE [Concomitant]
     Active Substance: METOPROLOL SUCCINATE
  7. ALBUTEROL SULFATE [Concomitant]
     Active Substance: ALBUTEROL SULFATE
  8. SPIRIVA RESPIMAT [Concomitant]
     Active Substance: TIOTROPIUM BROMIDE
  9. SOOLANTRA [Concomitant]
     Active Substance: IVERMECTIN
  10. GABAPENTIN [Concomitant]
     Active Substance: GABAPENTIN
  11. DOXYCYCLINE HYCLATE [Concomitant]
     Active Substance: DOXYCYCLINE HYCLATE
  12. KETOCONAZOLE [Concomitant]
     Active Substance: KETOCONAZOLE
  13. HYDROCHLOROTHIAZIDE [Concomitant]
     Active Substance: HYDROCHLOROTHIAZIDE
  14. CINNAMON [CINNAMOMUM VERUM] [Concomitant]
  15. OMEGA-3 FATTY ACIDS [Concomitant]
     Active Substance: OMEGA-3 FATTY ACIDS
  16. COLLAGENASE [Concomitant]
     Active Substance: COLLAGENASE CLOSTRIDIUM HISTOLYTICUM

REACTIONS (4)
  - Nasal congestion [Unknown]
  - Cough [Unknown]
  - Influenza [Unknown]
  - Throat irritation [Unknown]

NARRATIVE: CASE EVENT DATE: 20230101
